FAERS Safety Report 13581671 (Version 2)
Quarter: 2017Q3

REPORT INFORMATION
  Report Type: Report from Study
  Country: CA (occurrence: CA)
  Receive Date: 20170525
  Receipt Date: 20170717
  Transmission Date: 20171127
  Serious: Yes (Other)
  Sender: FDA-Public Use
  Company Number: CA-BIOGEN-2017BI00405407

PATIENT
  Age: 31 Year
  Sex: Female

DRUGS (5)
  1. TECFIDERA [Suspect]
     Active Substance: DIMETHYL FUMARATE
     Indication: MULTIPLE SCLEROSIS
     Dosage: STARTING DOSE AS PER MD
     Route: 048
     Dates: start: 20170323, end: 20170329
  2. BACLOFEN. [Concomitant]
     Active Substance: BACLOFEN
     Indication: PRODUCT USED FOR UNKNOWN INDICATION
     Route: 065
  3. TECFIDERA [Suspect]
     Active Substance: DIMETHYL FUMARATE
     Dosage: 120MG X 2 IN AM, 120MG X 1 IN PM, AS PER MD
     Route: 048
     Dates: start: 20170406, end: 20170412
  4. TECFIDERA [Suspect]
     Active Substance: DIMETHYL FUMARATE
     Dosage: MAINTENANCE DOSE
     Route: 048
     Dates: start: 20170413
  5. TECFIDERA [Suspect]
     Active Substance: DIMETHYL FUMARATE
     Dosage: DOSE AS PER MD
     Route: 048
     Dates: start: 20170330, end: 20170405

REACTIONS (14)
  - Neck pain [Not Recovered/Not Resolved]
  - Suicidal ideation [Recovered/Resolved]
  - Wrist fracture [Not Recovered/Not Resolved]
  - Hepatic mass [Not Recovered/Not Resolved]
  - Musculoskeletal pain [Not Recovered/Not Resolved]
  - Hand fracture [Not Recovered/Not Resolved]
  - Prescribed underdose [Recovered/Resolved]
  - Mood swings [Not Recovered/Not Resolved]
  - Road traffic accident [Recovered/Resolved]
  - Back pain [Not Recovered/Not Resolved]
  - Multiple sclerosis relapse [Unknown]
  - Depression [Recovered/Resolved]
  - Haemoglobin decreased [Not Recovered/Not Resolved]
  - Urticaria [Recovered/Resolved]

NARRATIVE: CASE EVENT DATE: 20170323
